FAERS Safety Report 20852756 (Version 11)
Quarter: 2025Q4

REPORT INFORMATION
  Report Type: Report from Study
  Country: CA (occurrence: CA)
  Receive Date: 20220520
  Receipt Date: 20251010
  Transmission Date: 20260117
  Serious: Yes (Hospitalization, Other)
  Sender: HLS THERAPEUTICS
  Company Number: CA-HLS-202200970

PATIENT
  Age: 49 Year
  Sex: Female

DRUGS (21)
  1. CLOZARIL [Suspect]
     Active Substance: CLOZAPINE
     Indication: Product used for unknown indication
     Dosage: START DATE: 2025 - AUG - 26
     Route: 048
     Dates: end: 20250924
  2. CLOZARIL [Suspect]
     Active Substance: CLOZAPINE
     Indication: Product used for unknown indication
     Dosage: UNKNOWN?GRADUALLY INCREASED OVER SEVERAL MONTHS TO A DOSE OF 300 MG ORALLY DAILY
     Route: 048
     Dates: start: 20220321, end: 20220627
  3. EPIVAL [Concomitant]
     Active Substance: DIVALPROEX SODIUM
     Indication: Product used for unknown indication
     Dosage: UNKNOWN
     Route: 065
  4. FUROSEMIDE [Concomitant]
     Active Substance: FUROSEMIDE
     Indication: Product used for unknown indication
     Route: 048
  5. MAGNESIUM [Concomitant]
     Active Substance: MAGNESIUM
     Indication: Product used for unknown indication
     Route: 048
  6. COGENTIN [Concomitant]
     Active Substance: BENZTROPINE MESYLATE
     Indication: Product used for unknown indication
     Dosage: 2 MG PER AS ONCE A DAY PRN ORALLY
     Route: 048
  7. LORAZEPAM [Concomitant]
     Active Substance: LORAZEPAM
     Indication: Product used for unknown indication
     Dosage: 2 MG ORALLY TID PRN
     Route: 048
  8. Clopixol Depo [Concomitant]
     Indication: Product used for unknown indication
     Route: 030
  9. OLANZAPINE [Concomitant]
     Active Substance: OLANZAPINE
     Indication: Product used for unknown indication
     Dosage: 20 MG ORALLY HS
     Route: 048
  10. LEVOMEPROMAZINE [Concomitant]
     Active Substance: LEVOMEPROMAZINE
     Indication: Product used for unknown indication
     Dosage: 25 MG ORALLY TID PRN
     Route: 048
  11. N ozinan [Concomitant]
     Indication: Product used for unknown indication
     Dosage: 50 MG ORALLY QID
     Route: 048
  12. EPIVAL [Concomitant]
     Active Substance: DIVALPROEX SODIUM
     Indication: Product used for unknown indication
     Dosage: HS
     Route: 048
  13. ENTRESTO [Concomitant]
     Active Substance: SACUBITRIL\VALSARTAN
     Indication: Product used for unknown indication
     Dosage: 24-26 MG, .5 CO PER OS BID
     Route: 065
  14. BISOPROLOL [Concomitant]
     Active Substance: BISOPROLOL
     Indication: Product used for unknown indication
     Route: 048
  15. APIXABAN [Concomitant]
     Active Substance: APIXABAN
     Indication: Product used for unknown indication
     Dosage: BID
     Route: 048
  16. MIDODRINE [Concomitant]
     Active Substance: MIDODRINE
     Indication: Product used for unknown indication
     Dosage: TID
     Route: 065
  17. LEVOTHYROXINE [Concomitant]
     Active Substance: LEVOTHYROXINE
     Indication: Product used for unknown indication
     Route: 048
  18. METFORMIN [Concomitant]
     Active Substance: METFORMIN HYDROCHLORIDE
     Indication: Product used for unknown indication
     Route: 048
  19. DAPAGLIFLOZIN [Concomitant]
     Active Substance: DAPAGLIFLOZIN
     Indication: Product used for unknown indication
     Route: 048
  20. DEXILANT [Concomitant]
     Active Substance: DEXLANSOPRAZOLE
     Indication: Product used for unknown indication
     Route: 048
  21. Laxaday [Concomitant]
     Indication: Product used for unknown indication
     Route: 065

REACTIONS (24)
  - Neutropenia [Unknown]
  - Neutrophil count decreased [Unknown]
  - Hypotension [Unknown]
  - Drug resistance [Unknown]
  - Bundle branch block left [Unknown]
  - Schizophrenia [Recovering/Resolving]
  - Treatment noncompliance [Unknown]
  - Therapy interrupted [Unknown]
  - Drug intolerance [Unknown]
  - Therapy interrupted [Unknown]
  - Left atrial enlargement [Unknown]
  - Electrocardiogram QT prolonged [Not Recovered/Not Resolved]
  - Mania [Recovering/Resolving]
  - Leukopenia [Recovered/Resolved]
  - Neutropenia [Recovered/Resolved]
  - Bipolar disorder [Unknown]
  - Schizoaffective disorder [Unknown]
  - Adverse drug reaction [Unknown]
  - Atrioventricular block first degree [Unknown]
  - Supraventricular extrasystoles [Unknown]
  - Ventricular extrasystoles [Unknown]
  - Leukopenia [Unknown]
  - White blood cell count decreased [Unknown]
  - Weight increased [Unknown]

NARRATIVE: CASE EVENT DATE: 20220705
